FAERS Safety Report 10569585 (Version 2)
Quarter: 2014Q4

REPORT INFORMATION
  Report Type: Spontaneous
  Country: BR (occurrence: BR)
  Receive Date: 20141106
  Receipt Date: 20141124
  Transmission Date: 20150529
  Serious: Yes (Other)
  Sender: FDA-Public Use
  Company Number: PHHY2014BR144988

PATIENT
  Age: 55 Year
  Sex: Female

DRUGS (4)
  1. CETOPROFENO [Concomitant]
     Indication: EXOSTOSIS
  2. CETOPROFENO [Concomitant]
     Indication: SCOLIOSIS
  3. ACLASTA [Suspect]
     Active Substance: ZOLEDRONIC ACID
     Indication: OSTEOPOROSIS
     Dosage: 5 MG/100ML, YEARLY
     Route: 042
     Dates: start: 200910
  4. CETOPROFENO [Concomitant]
     Indication: OSTEOARTHRITIS
     Dosage: UNK UNK, PRN
     Route: 030
     Dates: start: 2001

REACTIONS (2)
  - Lymphadenopathy [Not Recovered/Not Resolved]
  - Endometriosis [Not Recovered/Not Resolved]
